FAERS Safety Report 11143469 (Version 1)
Quarter: 2015Q2

REPORT INFORMATION
  Report Type: Spontaneous
  Country: US (occurrence: None)
  Receive Date: 20150527
  Receipt Date: 20150527
  Transmission Date: 20150821
  Serious: No
  Sender: FDA-Public Use
  Company Number: None

PATIENT
  Age: 65 Year
  Sex: Female

DRUGS (1)
  1. GILENYA [Suspect]
     Active Substance: FINGOLIMOD HYDROCHLORIDE
     Indication: MULTIPLE SCLEROSIS
     Route: 048
     Dates: start: 20150409

REACTIONS (6)
  - Headache [None]
  - Decreased appetite [None]
  - Cough [None]
  - Vision blurred [None]
  - Memory impairment [None]
  - Confusional state [None]

NARRATIVE: CASE EVENT DATE: 20150524
